FAERS Safety Report 11773645 (Version 1)
Quarter: 2015Q4

REPORT INFORMATION
  Report Type: Spontaneous
  Country: PE (occurrence: PE)
  Receive Date: 20151124
  Receipt Date: 20151124
  Transmission Date: 20160304
  Serious: Yes (Death, Hospitalization, Disabling, Other)
  Sender: FDA-Public Use
  Company Number: PE-TEVA-609718ISR

PATIENT
  Age: 87 Year
  Sex: Male

DRUGS (1)
  1. AZILECT [Suspect]
     Active Substance: RASAGILINE MESYLATE
     Dosage: 1 DOSAGE FORMS DAILY;
     Route: 048
     Dates: start: 201405, end: 201405

REACTIONS (3)
  - Oesophageal carcinoma [Fatal]
  - Eating disorder [Unknown]
  - Dyspnoea [Unknown]

NARRATIVE: CASE EVENT DATE: 201407
